FAERS Safety Report 8536922 (Version 2)
Quarter: 2019Q3

REPORT INFORMATION
  Report Type: Spontaneous
  Country: DE (occurrence: DE)
  Receive Date: 20120430
  Receipt Date: 20190911
  Transmission Date: 20191005
  Serious: Yes (Hospitalization, Congenital Anomaly, Other)
  Sender: FDA-Public Use
  Company Number: DE-UCBSA-055938

PATIENT
  Age: 0 Year
  Sex: Male
  Weight: .99 kg

DRUGS (4)
  1. KEPPRA [Suspect]
     Active Substance: LEVETIRACETAM
     Indication: EPILEPSY
     Dosage: 1500 MG, 2X/DAY (BID)
     Route: 064
     Dates: start: 200912, end: 20100619
  2. UNACID [AMPICILLIN SODIUM;SULBACTAM SODIUM] [Concomitant]
     Active Substance: AMPICILLIN SODIUM\SULBACTAM SODIUM
     Indication: ANTIBIOTIC PROPHYLAXIS
     Dosage: UNK
     Route: 064
     Dates: start: 20100510, end: 20100514
  3. FOLIO FORTE [Concomitant]
     Active Substance: FOLIC ACID\VITAMINS
     Indication: NEURAL TUBE DEFECT
     Dosage: DAILY DOSE:0.8 MG
     Route: 064
     Dates: start: 200912, end: 20100619
  4. FUNGIZID -RATIOPHARM VAGINALTABLETTEN [Concomitant]
     Indication: VULVOVAGINAL MYCOTIC INFECTION
     Dosage: UNK
     Route: 064
     Dates: start: 20100512, end: 20100516

REACTIONS (12)
  - Congenital cystic kidney disease [Not Recovered/Not Resolved]
  - Feeding disorder [Unknown]
  - Pneumonia [Unknown]
  - Maternal exposure before pregnancy [Unknown]
  - Premature baby [Recovered/Resolved]
  - Respiratory distress [Unknown]
  - Hyperbilirubinaemia [Unknown]
  - Anaemia [Unknown]
  - Renal impairment neonatal [Not Recovered/Not Resolved]
  - Patent ductus arteriosus [Recovered/Resolved]
  - Renal aplasia [Not Recovered/Not Resolved]
  - Bradycardia [Unknown]

NARRATIVE: CASE EVENT DATE: 200912
